FAERS Safety Report 5740361-4 (Version None)
Quarter: 2008Q2

REPORT INFORMATION
  Report Type: 
  Country: None (occurrence: None)
  Receive Date: 20080516
  Receipt Date: 20080509
  Transmission Date: 20081010
  Serious: Yes (Other)
  Sender: FDA-Public Use
  Company Number: US-ASTRAZENECA-2008UW00798

PATIENT
  Age: 16934 Day
  Sex: Female
  Weight: 81.8 kg

DRUGS (3)
  1. SEROQUEL [Suspect]
     Indication: SLEEP DISORDER
     Dosage: 25 MG, 100 MG, 300 MG, 400 MG
     Route: 048
     Dates: start: 20000101
  2. ABILIFY [Concomitant]
     Dates: start: 20030101
  3. RISPERDAL [Concomitant]
     Dates: start: 20020101

REACTIONS (2)
  - DIABETES MELLITUS [None]
  - LOSS OF CONSCIOUSNESS [None]
